FAERS Safety Report 4375405-8 (Version None)
Quarter: 2004Q2

REPORT INFORMATION
  Report Type: 
  Country: None (occurrence: None)
  Receive Date: 20040603
  Receipt Date: 20040519
  Transmission Date: 20050107
  Serious: No
  Sender: FDA-Public Use
  Company Number: CART-10112

PATIENT
  Age: 45 Year
  Sex: Female

DRUGS (1)
  1. CARTICEL [Suspect]
     Indication: BONE DISORDER
     Dosage: 1 NA ONCE IS
     Dates: start: 19980505, end: 19980505

REACTIONS (5)
  - FRACTURE [None]
  - GRAFT COMPLICATION [None]
  - LOOSE BODY IN JOINT [None]
  - MENISCUS LESION [None]
  - TRANSPLANT FAILURE [None]
